FAERS Safety Report 13740819 (Version 1)
Quarter: 2017Q3

REPORT INFORMATION
  Report Type: Spontaneous
  Country: US (occurrence: US)
  Receive Date: 20170710
  Receipt Date: 20170710
  Transmission Date: 20171127
  Serious: No
  Sender: FDA-Public Use
  Company Number: None

PATIENT
  Sex: Female

DRUGS (1)
  1. DOFETILIDE. [Suspect]
     Active Substance: DOFETILIDE
     Route: 048
     Dates: start: 20170417

REACTIONS (5)
  - Drug dose omission [None]
  - Diarrhoea [None]
  - Electrolyte imbalance [None]
  - Chest pain [None]
  - Cardiac disorder [None]
